FAERS Safety Report 5947473-0 (Version None)
Quarter: 2008Q4

REPORT INFORMATION
  Report Type: 
  Country: None (occurrence: None)
  Receive Date: 20081110
  Receipt Date: 20081030
  Transmission Date: 20090506
  Serious: Yes (Hospitalization)
  Sender: FDA-Public Use
  Company Number: PHHY2008MX26703

PATIENT
  Age: 28 Year
  Sex: Female

DRUGS (1)
  1. TRILEPTAL [Suspect]
     Indication: EPILEPSY
     Dosage: 1.5 DF/DAY
     Route: 048
     Dates: start: 20040501, end: 20080901

REACTIONS (2)
  - MULTIPLE FRACTURES [None]
  - ROAD TRAFFIC ACCIDENT [None]
